FAERS Safety Report 12689293 (Version 1)
Quarter: 2016Q3

REPORT INFORMATION
  Report Type: Spontaneous
  Country: US (occurrence: None)
  Receive Date: 20160825
  Receipt Date: 20160825
  Transmission Date: 20161109
  Serious: Yes (Hospitalization)
  Sender: FDA-Public Use
  Company Number: None

PATIENT
  Age: 69 Year
  Sex: Male
  Weight: 91.9 kg

DRUGS (2)
  1. PIPERACILLIN/TAZOBACTAM [Suspect]
     Active Substance: PIPERACILLIN SODIUM\TAZOBACTAM SODIUM
     Indication: DIABETIC ULCER
     Dates: start: 20160709, end: 20160718
  2. VANCOMYCIN [Suspect]
     Active Substance: VANCOMYCIN
     Indication: DIABETIC ULCER
     Dates: start: 20160709, end: 20160712

REACTIONS (4)
  - Hypersensitivity vasculitis [None]
  - Drug level above therapeutic [None]
  - Cellulitis [None]
  - Arterial stent insertion [None]

NARRATIVE: CASE EVENT DATE: 20160717
